FAERS Safety Report 9326797 (Version 2)
Quarter: 2013Q3

REPORT INFORMATION
  Report Type: Spontaneous
  Country: US (occurrence: US)
  Receive Date: 20130604
  Receipt Date: 20130807
  Transmission Date: 20140515
  Serious: No
  Sender: FDA-Public Use
  Company Number: US-AMGEN-USASP2013033790

PATIENT
  Age: 22 Year
  Sex: Female

DRUGS (1)
  1. ENBREL [Suspect]
     Indication: GUTTATE PSORIASIS
     Dosage: UNK UNK, 2 TIMES/WK
     Route: 065
     Dates: start: 20040501, end: 201305

REACTIONS (10)
  - Injection site bruising [Recovered/Resolved]
  - Viral infection [Recovered/Resolved]
  - Guttate psoriasis [Not Recovered/Not Resolved]
  - Injection site warmth [Not Recovered/Not Resolved]
  - Injection site reaction [Not Recovered/Not Resolved]
  - Injection site erythema [Recovered/Resolved]
  - Injection site swelling [Recovered/Resolved]
  - Injection site hypersensitivity [Recovered/Resolved]
  - Injection site discolouration [Not Recovered/Not Resolved]
  - Infection [Recovered/Resolved]
